FAERS Safety Report 8303014-4 (Version None)
Quarter: 2012Q2

REPORT INFORMATION
  Report Type: 
  Country: None (occurrence: None)
  Receive Date: 20120421
  Receipt Date: 20120412
  Transmission Date: 20120825
  Serious: Yes (Other)
  Sender: FDA-Public Use
  Company Number: JP-VERTEX PHARMACEUTICALS INC.-AE-2012-004843

PATIENT
  Sex: Female

DRUGS (20)
  1. TELAVIC (TELAPREVIR) [Suspect]
     Route: 048
     Dates: start: 20120105, end: 20120112
  2. TELAVIC (TELAPREVIR) [Suspect]
     Route: 048
     Dates: start: 20120216, end: 20120222
  3. TELAVIC (TELAPREVIR) [Suspect]
     Route: 048
     Dates: start: 20120301
  4. TELAVIC (TELAPREVIR) [Suspect]
     Route: 048
     Dates: start: 20120114, end: 20120115
  5. REBETOL [Concomitant]
     Route: 048
     Dates: start: 20120105, end: 20120111
  6. REBETOL [Concomitant]
     Route: 048
     Dates: start: 20120223, end: 20120225
  7. REBETOL [Concomitant]
     Route: 048
     Dates: start: 20120216
  8. TELAVIC (TELAPREVIR) [Suspect]
     Route: 048
     Dates: start: 20120223, end: 20120229
  9. TELAVIC (TELAPREVIR) [Suspect]
     Route: 048
     Dates: start: 20120126, end: 20120201
  10. REBETOL [Concomitant]
     Route: 048
     Dates: start: 20120114, end: 20120118
  11. PEG-INTRON [Concomitant]
     Indication: HEPATITIS C
     Route: 058
     Dates: start: 20111228, end: 20120117
  12. NORVASC [Concomitant]
     Indication: HYPERTENSION
     Route: 048
  13. TELAVIC (TELAPREVIR) [Suspect]
     Route: 048
     Dates: start: 20120123, end: 20120125
  14. REBETOL [Concomitant]
     Route: 048
     Dates: start: 20120112, end: 20120112
  15. PEG-INTRON [Concomitant]
     Route: 058
     Dates: start: 20120301
  16. TELAVIC (TELAPREVIR) [Suspect]
     Indication: HEPATITIS C
     Route: 048
     Dates: start: 20111228, end: 20120104
  17. REBETOL [Concomitant]
     Indication: HEPATITIS C
     Route: 048
     Dates: start: 20111228, end: 20120104
  18. PEG-INTRON [Concomitant]
     Route: 058
     Dates: start: 20120216, end: 20120229
  19. TELAVIC (TELAPREVIR) [Suspect]
     Route: 048
     Dates: start: 20120116, end: 20120118
  20. PEG-INTRON [Concomitant]
     Route: 058
     Dates: start: 20120126, end: 20120201

REACTIONS (1)
  - WHITE BLOOD CELL COUNT DECREASED [None]
